FAERS Safety Report 7031946-6 (Version None)
Quarter: 2010Q4

REPORT INFORMATION
  Report Type: 
  Country: None (occurrence: None)
  Receive Date: 20101007
  Receipt Date: 20101004
  Transmission Date: 20110411
  Serious: Yes (Hospitalization, Other)
  Sender: FDA-Public Use
  Company Number: US-ELI_LILLY_AND_COMPANY-US201005000632

PATIENT
  Sex: Male
  Weight: 99.773 kg

DRUGS (6)
  1. BYETTA [Suspect]
  2. LIPITOR [Concomitant]
     Indication: BLOOD CHOLESTEROL
  3. METFORMIN [Concomitant]
  4. BENICAR [Concomitant]
     Indication: BLOOD PRESSURE
  5. LEVAQUIN [Concomitant]
     Indication: ANTIBIOTIC THERAPY
  6. FUROSEMIDE [Concomitant]
     Indication: DIURETIC THERAPY

REACTIONS (3)
  - MOTOR DYSFUNCTION [None]
  - PANCREATITIS [None]
  - RENAL FAILURE [None]
